FAERS Safety Report 24199997 (Version 2)
Quarter: 2024Q3

REPORT INFORMATION
  Report Type: Report from Study
  Country: US (occurrence: US)
  Receive Date: 20240812
  Receipt Date: 20240816
  Transmission Date: 20241016
  Serious: Yes (Hospitalization)
  Sender: BAYER
  Company Number: US-BAYER-2024A110884

PATIENT
  Age: 69 Year
  Sex: Male

DRUGS (1)
  1. ADEMPAS [Suspect]
     Active Substance: RIOCIGUAT
     Indication: Pulmonary arterial hypertension
     Dosage: 0.5 MG, TID
     Route: 048
     Dates: start: 20240722

REACTIONS (3)
  - Pulmonary embolism [Recovered/Resolved]
  - Dizziness [None]
  - Headache [None]

NARRATIVE: CASE EVENT DATE: 20240701
